FAERS Safety Report 8058828-5 (Version None)
Quarter: 2012Q1

REPORT INFORMATION
  Report Type: 
  Country: None (occurrence: None)
  Receive Date: 20120120
  Receipt Date: 20111223
  Transmission Date: 20120608
  Serious: No
  Sender: FDA-Public Use
  Company Number: US-BRISTOL-MYERS SQUIBB COMPANY-16281768

PATIENT

DRUGS (3)
  1. YERVOY [Suspect]
     Dosage: LOT:917823; EXPJAN2014; NDC00003-2328-22 YERVOY- 3VIALS OF 50MG/10ML YERVOY-2VIALS 200MG/40ML
  2. ERBITUX [Suspect]
     Dosage: EXP MAR 2013 ERBITUX-3 VIALS OF 200MG/100ML   ERBITUX-9 VIALS OF 100MG/50ML
  3. VUMON [Suspect]
     Dosage: VUMON 12VIALS OF 50MG/5ML

REACTIONS (1)
  - INCORRECT STORAGE OF DRUG [None]
